FAERS Safety Report 9678593 (Version 2)
Quarter: 2013Q4

REPORT INFORMATION
  Report Type: Spontaneous
  Country: US (occurrence: US)
  Receive Date: 20131108
  Receipt Date: 20131120
  Transmission Date: 20140711
  Serious: No
  Sender: FDA-Public Use
  Company Number: 2013SP003252

PATIENT
  Age: 24 Year
  Sex: Male
  Weight: 90 kg

DRUGS (4)
  1. LATUDA [Suspect]
     Indication: BIPOLAR I DISORDER
     Route: 048
     Dates: start: 20131003, end: 20131004
  2. SAPHRIS [Concomitant]
     Indication: PRODUCT USED FOR UNKNOWN INDICATION
     Route: 048
  3. GEODON /01487003/ [Concomitant]
     Indication: BIPOLAR DISORDER
  4. ABILIFY [Concomitant]
     Indication: BIPOLAR DISORDER

REACTIONS (1)
  - Swollen tongue [Recovered/Resolved with Sequelae]
